FAERS Safety Report 4661045-X (Version None)
Quarter: 2005Q2

REPORT INFORMATION
  Report Type: 
  Country: None (occurrence: None)
  Receive Date: 20050511
  Receipt Date: 20050503
  Transmission Date: 20051028
  Serious: Yes (Other)
  Sender: FDA-Public Use
  Company Number: S05-USA-02263-01

PATIENT
  Age: 21 Year
  Sex: Female

DRUGS (5)
  1. LEXAPRO [Suspect]
     Indication: DYSTHYMIC DISORDER
     Dosage: 30 MG QD PO
     Route: 048
     Dates: start: 20050201
  2. LEXAPRO [Suspect]
     Indication: DYSTHYMIC DISORDER
     Dosage: 10 MG QD PO
     Route: 048
     Dates: start: 20040901
  3. LEXAPRO [Suspect]
     Indication: DYSTHYMIC DISORDER
     Dosage: 20 MG QD PO
     Route: 048
  4. DIOVAN [Concomitant]
  5. CELEBREX [Concomitant]

REACTIONS (2)
  - HYDROCEPHALUS [None]
  - PAPILLOEDEMA [None]
